FAERS Safety Report 23862823 (Version 3)
Quarter: 2025Q1

REPORT INFORMATION
  Report Type: Spontaneous
  Country: US (occurrence: US)
  Receive Date: 20240516
  Receipt Date: 20250220
  Transmission Date: 20250408
  Serious: No
  Sender: ABBVIE
  Company Number: US-ABBVIE-5757559

PATIENT
  Age: 45 Year
  Sex: Female

DRUGS (2)
  1. LILETTA [Suspect]
     Active Substance: LEVONORGESTREL
     Indication: Product used for unknown indication
     Route: 015
     Dates: start: 20240213
  2. LILETTA [Suspect]
     Active Substance: LEVONORGESTREL
     Route: 015
     Dates: start: 20240307

REACTIONS (4)
  - Dysmenorrhoea [Unknown]
  - Device expulsion [Recovered/Resolved]
  - Device expulsion [Unknown]
  - Heavy menstrual bleeding [Unknown]

NARRATIVE: CASE EVENT DATE: 20240101
